FAERS Safety Report 13280384 (Version 1)
Quarter: 2017Q1

REPORT INFORMATION
  Report Type: Spontaneous
  Country: US (occurrence: US)
  Receive Date: 20170228
  Receipt Date: 20170228
  Transmission Date: 20170428
  Serious: Yes (Other)
  Sender: FDA-Public Use
  Company Number: None

PATIENT
  Age: 7 Month
  Sex: Female
  Weight: 8.1 kg

DRUGS (4)
  1. DESONIDE. [Concomitant]
     Active Substance: DESONIDE
  2. BABY TEETHING (HYLAND HOMEOPATHIC) [Suspect]
     Active Substance: HOMEOPATHICS
     Indication: TEETHING
     Dosage: ?          QUANTITY:3 TABLET(S);?
     Route: 060
     Dates: start: 20170127, end: 20170217
  3. BABY TEETHING (HYLAND HOMEOPATHIC) [Suspect]
     Active Substance: HOMEOPATHICS
     Indication: IRRITABILITY
     Dosage: ?          QUANTITY:3 TABLET(S);?
     Route: 060
     Dates: start: 20170127, end: 20170217
  4. BABY TEETHING (HYLAND HOMEOPATHIC) [Suspect]
     Active Substance: HOMEOPATHICS
     Indication: INSOMNIA
     Dosage: ?          QUANTITY:3 TABLET(S);?
     Route: 060
     Dates: start: 20170127, end: 20170217

REACTIONS (7)
  - Vision blurred [None]
  - Constipation [None]
  - Gait disturbance [None]
  - Hypopnoea [None]
  - Syncope [None]
  - Eye movement disorder [None]
  - Abnormal behaviour [None]

NARRATIVE: CASE EVENT DATE: 20170210
